FAERS Safety Report 6994914-6 (Version None)
Quarter: 2010Q3

REPORT INFORMATION
  Report Type: 
  Country: None (occurrence: None)
  Receive Date: 20100917
  Receipt Date: 20090109
  Transmission Date: 20110219
  Serious: Yes (Other)
  Sender: FDA-Public Use
  Company Number: HQWYE374404JAN05

PATIENT
  Sex: Female

DRUGS (9)
  1. PREMPRO [Suspect]
     Indication: HORMONE REPLACEMENT THERAPY
  2. PROVERA [Suspect]
  3. ESTROGEN NOS [Suspect]
  4. COMBIPATCH [Suspect]
  5. ESTRATAB [Suspect]
  6. PROMETRIUM [Suspect]
  7. PREMARIN [Suspect]
  8. PREMARIN [Suspect]
  9. MEDROXYPROGESTERONE ACETATE [Suspect]

REACTIONS (1)
  - BREAST CANCER [None]
